FAERS Safety Report 5703489-0 (Version None)
Quarter: 2008Q2

REPORT INFORMATION
  Report Type: 
  Country: None (occurrence: None)
  Receive Date: 20080411
  Receipt Date: 20080330
  Transmission Date: 20081010
  Serious: Yes (Death)
  Sender: FDA-Public Use
  Company Number: US-AMGEN-STX272091

PATIENT
  Sex: Female

DRUGS (1)
  1. ENBREL [Suspect]
     Route: 065
     Dates: start: 20060801

REACTIONS (1)
  - LEUKAEMIA [None]
